FAERS Safety Report 7209195-8 (Version None)
Quarter: 2011Q1

REPORT INFORMATION
  Report Type: 
  Country: None (occurrence: None)
  Receive Date: 20110104
  Receipt Date: 20101216
  Transmission Date: 20110831
  Serious: Yes (Congenital Anomaly)
  Sender: FDA-Public Use
  Company Number: A0682189A

PATIENT
  Sex: Male

DRUGS (8)
  1. PAXIL [Suspect]
     Indication: DEPRESSION
     Dosage: 30MG PER DAY
     Dates: start: 20020501, end: 20051201
  2. PRENATAL VITAMINS [Concomitant]
  3. BUSPAR [Concomitant]
  4. PAROXETINE HYDROCHLORIDE [Suspect]
     Indication: DEPRESSION
     Dosage: 30MG PER DAY
     Dates: start: 20030901, end: 20051201
  5. NPH INSULIN [Concomitant]
  6. TOBACCO [Concomitant]
  7. NOVOLOG [Concomitant]
  8. PRILOSEC [Concomitant]

REACTIONS (5)
  - PULMONARY VALVE STENOSIS CONGENITAL [None]
  - DRUG EXPOSURE DURING PREGNANCY [None]
  - MULTIPLE CONGENITAL ABNORMALITIES [None]
  - CARDIAC MURMUR [None]
  - PULMONARY ARTERY STENOSIS CONGENITAL [None]
